FAERS Safety Report 7004683-1 (Version None)
Quarter: 2010Q3

REPORT INFORMATION
  Report Type: 
  Country: None (occurrence: None)
  Receive Date: 20100921
  Receipt Date: 20100907
  Transmission Date: 20110219
  Serious: Yes (Death, Hospitalization, Other)
  Sender: FDA-Public Use
  Company Number: GB-RANBAXY-2010R1-38162

PATIENT

DRUGS (7)
  1. CITALOPRAM HYDROBROMIDE [Suspect]
     Indication: DEPRESSION
     Dosage: 20 MG, QD
     Route: 065
  2. MADOPAR 250 COMPRIMATE [Suspect]
     Indication: PARKINSON'S DISEASE
     Dosage: 62.5 MG, TID
     Route: 065
  3. MADOPAR 250 COMPRIMATE [Suspect]
     Dosage: 125MG,TID
     Route: 065
  4. MADOPAR 250 COMPRIMATE [Suspect]
     Dosage: 125 MG, QD AT NIGHT
     Route: 065
  5. MIRAPEX [Suspect]
     Indication: PARKINSON'S DISEASE
     Dosage: UNK
     Route: 065
     Dates: start: 20090101, end: 20090801
  6. CLOZAPINE [Concomitant]
     Indication: PSYCHOTIC DISORDER
     Dosage: 25 MG, BID
     Route: 065
  7. DIAZEPAM [Concomitant]
     Indication: ANXIETY
     Dosage: 5 MG, PRN

REACTIONS (9)
  - ACUTE PSYCHOSIS [None]
  - AGGRESSION [None]
  - COMPLETED SUICIDE [None]
  - DELUSION [None]
  - DEPRESSION [None]
  - HALLUCINATION, AUDITORY [None]
  - OVERDOSE [None]
  - PARANOIA [None]
  - SUICIDE ATTEMPT [None]
